FAERS Safety Report 24553923 (Version 5)
Quarter: 2024Q4

REPORT INFORMATION
  Report Type: Report from Study
  Country: IE (occurrence: IE)
  Receive Date: 20241028
  Receipt Date: 20241211
  Transmission Date: 20250114
  Serious: Yes (Hospitalization)
  Sender: ROCHE
  Company Number: None

PATIENT
  Age: 56 Year
  Sex: Female
  Weight: 116.5 kg

DRUGS (10)
  1. TRASTUZUMAB [Suspect]
     Active Substance: TRASTUZUMAB
     Indication: Colon cancer
     Dosage: 994 MG
     Route: 050
     Dates: start: 20240726, end: 20240819
  2. OXALIPLATIN [Suspect]
     Active Substance: OXALIPLATIN
     Indication: Colon cancer
     Dosage: 150 MG
     Route: 050
     Dates: start: 20240802, end: 20240819
  3. LEUCOVORIN CALCIUM [Suspect]
     Active Substance: LEUCOVORIN CALCIUM
     Indication: Colon cancer
     Dosage: 922 MG
     Route: 050
     Dates: start: 20240802, end: 20240819
  4. LOPERAMIDE [Suspect]
     Active Substance: LOPERAMIDE
     Indication: Colon cancer
     Route: 048
     Dates: start: 20240707, end: 20241014
  5. TUCATINIB [Suspect]
     Active Substance: TUCATINIB
     Indication: Colorectal cancer metastatic
     Dosage: 200 MG, BID
     Route: 050
     Dates: start: 20240902, end: 20240916
  6. FLUOROURACIL [Suspect]
     Active Substance: FLUOROURACIL
     Indication: Colon cancer
     Dosage: 4200 MG; 46 HOURS,
     Route: 050
     Dates: start: 20240802, end: 20240819
  7. FLUOROURACIL [Suspect]
     Active Substance: FLUOROURACIL
     Dosage: 738 MG
     Route: 050
     Dates: start: 20240802, end: 20240816
  8. LOSARTAN [Concomitant]
     Active Substance: LOSARTAN
     Indication: Hypertension
     Dosage: UNK
     Route: 050
     Dates: start: 20240817, end: 20240917
  9. METFORMIN [Concomitant]
     Active Substance: METFORMIN HYDROCHLORIDE
     Indication: Type 2 diabetes mellitus
     Dosage: UNK
     Dates: start: 20240817, end: 20240917
  10. METFORMIN [Concomitant]
     Active Substance: METFORMIN HYDROCHLORIDE
     Dosage: UNK
     Dates: start: 20240817, end: 20240917

REACTIONS (5)
  - Confusional state [Recovered/Resolved]
  - Hypovolaemia [Recovered/Resolved]
  - Hyponatraemia [Recovered/Resolved]
  - Acute kidney injury [Recovered/Resolved]
  - Blood creatine increased [Recovered/Resolved]

NARRATIVE: CASE EVENT DATE: 20240916
